FAERS Safety Report 8597318-8 (Version None)
Quarter: 2012Q3

REPORT INFORMATION
  Report Type: 
  Country: None (occurrence: None)
  Receive Date: 20120816
  Receipt Date: 20120811
  Transmission Date: 20120928
  Serious: No
  Sender: FDA-Public Use
  Company Number: US-PFIZER INC-2012061832

PATIENT
  Age: 50 Year
  Sex: Male

DRUGS (2)
  1. LISINOPRIL [Concomitant]
     Dosage: 10 MG, UNK
  2. DILANTIN [Suspect]
     Dosage: 100 MG, (3 CAP BY MOUTH AT BEDTIME)
     Route: 048

REACTIONS (1)
  - ESSENTIAL HYPERTENSION [None]
